FAERS Safety Report 4440817-0 (Version None)
Quarter: 2004Q3

REPORT INFORMATION
  Report Type: 
  Country: None (occurrence: None)
  Receive Date: 20040903
  Receipt Date: 20040827
  Transmission Date: 20050211
  Serious: Yes (Other)
  Sender: FDA-Public Use
  Company Number: US-GLAXOSMITHKLINE-A0523786A

PATIENT
  Age: 68 Year
  Sex: Male

DRUGS (2)
  1. COREG [Suspect]
     Indication: CARDIAC FAILURE CONGESTIVE
     Dosage: 6.25MG TWICE PER DAY
     Route: 048
     Dates: start: 20020801
  2. NO CONCURRENT MEDICATION [Concomitant]

REACTIONS (1)
  - DEAFNESS UNILATERAL [None]
